FAERS Safety Report 9644615 (Version 3)
Quarter: 2013Q4

REPORT INFORMATION
  Report Type: Spontaneous
  Country: US (occurrence: US)
  Receive Date: 20131025
  Receipt Date: 20131226
  Transmission Date: 20140711
  Serious: Yes (Other)
  Sender: FDA-Public Use
  Company Number: US-CELGENEUS-163-21880-12040383

PATIENT
  Age: 62 Year
  Sex: Male
  Weight: 86.2 kg

DRUGS (2)
  1. REVLIMID [Suspect]
     Indication: PLASMA CELL MYELOMA
     Dosage: 15 MILLIGRAM
     Route: 048
     Dates: start: 20110609, end: 20110831
  2. REVLIMID [Suspect]
     Dosage: 10 MILLIGRAM
     Route: 048
     Dates: start: 20120223

REACTIONS (6)
  - Eye disorder [Unknown]
  - Deep vein thrombosis [Unknown]
  - Thrombosis [Recovered/Resolved]
  - Drug dose omission [Unknown]
  - Headache [Recovered/Resolved]
  - Constipation [Recovered/Resolved]
